FAERS Safety Report 9722000 (Version 1)
Quarter: 2013Q4

REPORT INFORMATION
  Report Type: Spontaneous
  Country: US (occurrence: US)
  Receive Date: 20131202
  Receipt Date: 20131202
  Transmission Date: 20140711
  Serious: Yes (Other)
  Sender: FDA-Public Use
  Company Number: US-AMGEN-USASP2013084139

PATIENT
  Age: 73 Year
  Sex: Male

DRUGS (1)
  1. EPOGEN [Suspect]
     Indication: RENAL FAILURE CHRONIC
     Dosage: UNK
     Route: 065
     Dates: start: 201303

REACTIONS (2)
  - Renal cancer [Unknown]
  - Metastases to bone [Unknown]
